FAERS Safety Report 5197167-7 (Version None)
Quarter: 2007Q1

REPORT INFORMATION
  Report Type: 
  Country: None (occurrence: None)
  Receive Date: 20070103
  Receipt Date: 20061221
  Transmission Date: 20070707
  Serious: Yes (Hospitalization)
  Sender: FDA-Public Use
  Company Number: 475020

PATIENT
  Age: 92 Year
  Sex: Female

DRUGS (6)
  1. CARVEDILOL [Suspect]
     Indication: HYPERTENSION
     Dosage: 25MG PER DAY
     Route: 048
     Dates: start: 20060101, end: 20060924
  2. TRIATEC [Concomitant]
  3. LASIX [Concomitant]
  4. CATAPRESAN [Concomitant]
  5. CARDIRENE [Concomitant]
  6. ZOLOFT [Concomitant]

REACTIONS (2)
  - BRADYCARDIA [None]
  - TRANSIENT ISCHAEMIC ATTACK [None]
